FAERS Safety Report 7484996-X (Version None)
Quarter: 2011Q2

REPORT INFORMATION
  Report Type: 
  Country: None (occurrence: None)
  Receive Date: 20110517
  Receipt Date: 20101010
  Transmission Date: 20111010
  Serious: No
  Sender: FDA-Public Use
  Company Number: US-BAYER-201022420BCC

PATIENT
  Sex: Female

DRUGS (1)
  1. NAPROXEN (ALEVE) [Suspect]
     Indication: BACK PAIN
     Dosage: 440MG ON MORNING, 220MG IN THE NOON AND 220MG BY THE EVENING / COUNT BOTTLE UNKNOWN
     Route: 048

REACTIONS (1)
  - BACK PAIN [None]
